FAERS Safety Report 10563469 (Version 2)
Quarter: 2014Q4

REPORT INFORMATION
  Report Type: Report from Study
  Country: US (occurrence: US)
  Receive Date: 20141104
  Receipt Date: 20141119
  Transmission Date: 20150529
  Serious: Yes (Other)
  Sender: FDA-Public Use
  Company Number: US-PFIZER INC-2014303415

PATIENT

DRUGS (4)
  1. ACETAMINOPHEN. [Suspect]
     Active Substance: ACETAMINOPHEN
     Dosage: 1000 MG, EVERY 6 HOURS
     Route: 048
  2. KETOROLAC [Suspect]
     Active Substance: KETOROLAC\KETOROLAC TROMETHAMINE
     Dosage: 30 MG, UNK
     Route: 042
  3. BUPIVACAINE [Suspect]
     Active Substance: BUPIVACAINE
     Dosage: 266 MG IN 40 ML 0.9% NORMAL SALINE
     Route: 065
  4. IBUPROFEN. [Suspect]
     Active Substance: IBUPROFEN
     Dosage: 600 MG, EVERY 6 HOURS
     Route: 048

REACTIONS (6)
  - Tachycardia [Unknown]
  - Abdominal pain [Unknown]
  - Hypokalaemia [Unknown]
  - Cellulitis [Unknown]
  - Anaemia [Unknown]
  - Nausea [Unknown]
